FAERS Safety Report 8838609 (Version 2)
Quarter: 2015Q1

REPORT INFORMATION
  Report Type: Spontaneous
  Country: US (occurrence: US)
  Receive Date: 20121012
  Receipt Date: 20150103
  Transmission Date: 20150721
  Serious: No
  Sender: FDA-Public Use
  Company Number: US-ASTRAZENECA-2012SE77129

PATIENT
  Age: 47 Year
  Sex: Male

DRUGS (20)
  1. EPIPEN [Concomitant]
     Active Substance: EPINEPHRINE
     Indication: ALLERGY TO ARTHROPOD STING
     Dosage: 0.3MG/0.3ML AS DIRECTED
     Route: 065
     Dates: start: 20130821
  2. TRAMADOL [Concomitant]
     Active Substance: TRAMADOL
     Indication: ARTHRALGIA
     Dosage: 50 MG AS NEEDED FOR PAIN, EVERY 5 HRS AS NEEDED
     Route: 048
     Dates: start: 20130821
  3. MULTIPLE VITAMIN [Concomitant]
     Active Substance: VITAMINS
     Dosage: AS DIRECTED
     Route: 048
     Dates: start: 20130702
  4. VITAMIN D3 [Concomitant]
     Active Substance: CHOLECALCIFEROL
     Dosage: 5000
     Route: 048
     Dates: start: 20130702
  5. HCTZ [Concomitant]
     Active Substance: HYDROCHLOROTHIAZIDE
     Dosage: 12.5MG
  6. ALBUTEROL SULFATE. [Concomitant]
     Active Substance: ALBUTEROL SULFATE
     Dosage: 108UG AS REQUIRED
     Route: 055
     Dates: start: 20140624
  7. PLAVIX [Concomitant]
     Active Substance: CLOPIDOGREL BISULFATE
  8. LOVAZA [Concomitant]
     Active Substance: OMEGA-3-ACID ETHYL ESTERS
     Dosage: 1 GM
  9. KETOCONAZOLE. [Concomitant]
     Active Substance: KETOCONAZOLE
     Dosage: DAILY
     Route: 061
  10. GEMFIBROZIL. [Concomitant]
     Active Substance: GEMFIBROZIL
     Route: 048
     Dates: start: 20130819
  11. ATACAND HCT [Concomitant]
     Active Substance: CANDESARTAN CILEXETIL\HYDROCHLOROTHIAZIDE
     Dosage: 32-25 MG 1 TABLET ONCE A DAY
     Route: 048
     Dates: start: 20141023
  12. FENOFIBRATE. [Concomitant]
     Active Substance: FENOFIBRATE
     Dosage: 145MG
  13. CRESTOR [Suspect]
     Active Substance: ROSUVASTATIN CALCIUM
     Route: 048
  14. ALBUTEROL SULFATE. [Concomitant]
     Active Substance: ALBUTEROL SULFATE
     Dosage: 2 PUFFS AS NEEDED INHALATION EVERY 4 HRS
     Route: 055
     Dates: start: 20140624
  15. LISINOPRIL. [Suspect]
     Active Substance: LISINOPRIL
     Route: 048
  16. CRESTOR [Suspect]
     Active Substance: ROSUVASTATIN CALCIUM
     Route: 048
  17. ASPIRIN. [Concomitant]
     Active Substance: ASPIRIN
     Route: 048
  18. NITROGLYCERIN. [Concomitant]
     Active Substance: NITROGLYCERIN
     Dosage: 0.4MG AS NEEDED EVERY 5 MIN PRN CHEST PAIN
     Route: 060
  19. VIAGRA [Concomitant]
     Active Substance: SILDENAFIL CITRATE
     Route: 048
     Dates: start: 20131023
  20. METOPROLOL TARTRATE. [Concomitant]
     Active Substance: METOPROLOL TARTRATE
     Dosage: 25 MG

REACTIONS (7)
  - Essential hypertension [Unknown]
  - Osteoarthritis [Unknown]
  - Type V hyperlipidaemia [Unknown]
  - Arteriosclerosis coronary artery [Unknown]
  - Drug hypersensitivity [Unknown]
  - Acute sinusitis [Unknown]
  - Rash [Unknown]
